FAERS Safety Report 24049572 (Version 1)
Quarter: 2024Q3

REPORT INFORMATION
  Report Type: Report from Study
  Country: US (occurrence: US)
  Receive Date: 20240704
  Receipt Date: 20240704
  Transmission Date: 20241016
  Serious: Yes (Other)
  Sender: JOHNSON AND JOHNSON
  Company Number: US-JNJFOC-20240632288

PATIENT
  Age: 50 Year
  Sex: Male
  Weight: 97.7 kg

DRUGS (3)
  1. SELEXIPAG [Suspect]
     Active Substance: SELEXIPAG
     Indication: Pulmonary hypertension
     Route: 048
  2. OPSUMIT [Concomitant]
     Active Substance: MACITENTAN
  3. TADALAFIL [Concomitant]
     Active Substance: TADALAFIL

REACTIONS (6)
  - Exophthalmos [Unknown]
  - Headache [Unknown]
  - Decreased appetite [Unknown]
  - Feeling abnormal [Unknown]
  - Nausea [Unknown]
  - Ocular hyperaemia [Unknown]

NARRATIVE: CASE EVENT DATE: 20240608
